FAERS Safety Report 5571287-7 (Version None)
Quarter: 2007Q4

REPORT INFORMATION
  Report Type: 
  Country: None (occurrence: None)
  Receive Date: 20071221
  Receipt Date: 20070501
  Transmission Date: 20080405
  Serious: No
  Sender: FDA-Public Use
  Company Number: A0649754A

PATIENT
  Sex: Male

DRUGS (2)
  1. FLONASE [Suspect]
     Indication: MULTIPLE ALLERGIES
     Route: 045
  2. CLARITIN [Concomitant]

REACTIONS (6)
  - ERYTHEMA [None]
  - FURUNCLE [None]
  - PAIN [None]
  - RHINALGIA [None]
  - SKIN LESION [None]
  - STAPHYLOCOCCAL INFECTION [None]
